FAERS Safety Report 16092511 (Version 3)
Quarter: 2020Q4

REPORT INFORMATION
  Report Type: Report from Study
  Country: CA (occurrence: CA)
  Receive Date: 20190319
  Receipt Date: 20201224
  Transmission Date: 20210113
  Serious: Yes (Death, Hospitalization)
  Sender: FDA-Public Use
  Company Number: PHHY2017CA139693

PATIENT
  Age: 78 Year
  Sex: Female
  Weight: 66 kg

DRUGS (2)
  1. ENTRESTO [Suspect]
     Active Substance: SACUBITRIL\VALSARTAN
     Dosage: 50 MG (24 MG SACUBITRIL/26 MG VALSARTAN), BID
     Route: 048
     Dates: start: 20180407, end: 20190311
  2. ENTRESTO [Suspect]
     Active Substance: SACUBITRIL\VALSARTAN
     Indication: CARDIAC FAILURE
     Dosage: 50 MG (24 MG SACUBITRIL/26 MG VALSARTAN), BID
     Route: 048
     Dates: start: 20170205, end: 20180403

REACTIONS (5)
  - Red blood cell sedimentation rate increased [Unknown]
  - Sepsis [Fatal]
  - Arthritis [Recovering/Resolving]
  - Anaemia [Not Recovered/Not Resolved]
  - Troponin increased [Unknown]

NARRATIVE: CASE EVENT DATE: 20180403
